FAERS Safety Report 7626342-4 (Version None)
Quarter: 2011Q3

REPORT INFORMATION
  Report Type: 
  Country: None (occurrence: None)
  Receive Date: 20110721
  Receipt Date: 20110718
  Transmission Date: 20111222
  Serious: Yes (Other)
  Sender: FDA-Public Use
  Company Number: US-PFIZER INC-2011164652

PATIENT
  Sex: Male

DRUGS (3)
  1. PHENYTOIN [Suspect]
     Dosage: 100 MG, UNK
  2. VALPROIC ACID [Interacting]
  3. DILANTIN [Interacting]
     Dosage: 100 NG, UNK

REACTIONS (2)
  - DRUG INTERACTION [None]
  - CONVULSION [None]
